FAERS Safety Report 10129314 (Version 1)
Quarter: 2014Q2

REPORT INFORMATION
  Report Type: Report from Study
  Country: US (occurrence: US)
  Receive Date: 20140428
  Receipt Date: 20140428
  Transmission Date: 20141212
  Serious: No
  Sender: FDA-Public Use
  Company Number: US-ABBVIE-14P-163-1206623-00

PATIENT
  Age: 57 Year
  Sex: Male
  Weight: 104.42 kg

DRUGS (8)
  1. ANDROGEL [Suspect]
     Indication: BLOOD TESTOSTERONE DECREASED
     Dosage: 3 PUMPS
     Route: 061
     Dates: start: 201301
  2. GLYBURIDE/METFORMIN [Concomitant]
     Indication: DIABETES MELLITUS
  3. SIMVASTATIN [Concomitant]
     Indication: BLOOD CHOLESTEROL INCREASED
  4. LOSARTAN [Concomitant]
     Indication: HYPERTENSION
  5. JANUVIA [Concomitant]
     Indication: DIABETES MELLITUS
  6. GLUCOSAMINE SULFATE [Concomitant]
     Indication: ARTHROPATHY
  7. ASPIRIN [Concomitant]
     Indication: CARDIAC DISORDER
  8. NIACIN [Concomitant]
     Indication: HIGH DENSITY LIPOPROTEIN DECREASED

REACTIONS (1)
  - Erection increased [Not Recovered/Not Resolved]
